FAERS Safety Report 23657986 (Version 1)
Quarter: 2024Q1

REPORT INFORMATION
  Report Type: Other
  Country: US (occurrence: US)
  Receive Date: 20240321
  Receipt Date: 20240321
  Transmission Date: 20240410
  Serious: Yes (Hospitalization, Other)
  Sender: FDA-Public Use
  Company Number: US-Owlpharma Consulting, Lda.-2154621

PATIENT
  Age: 67 Year
  Sex: Female

DRUGS (2)
  1. DEXMEDETOMIDINE [Suspect]
     Active Substance: DEXMEDETOMIDINE
  2. PROPOFOL [Suspect]
     Active Substance: PROPOFOL

REACTIONS (1)
  - Phaeochromocytoma crisis [Recovered/Resolved]
